FAERS Safety Report 6902144-9 (Version None)
Quarter: 2010Q3

REPORT INFORMATION
  Report Type: 
  Country: None (occurrence: None)
  Receive Date: 20100803
  Receipt Date: 20100727
  Transmission Date: 20110219
  Serious: Yes (Other)
  Sender: FDA-Public Use
  Company Number: JP-MERCK-1007USA02973

PATIENT
  Age: 60 Year
  Sex: Female

DRUGS (1)
  1. JANUVIA [Suspect]
     Indication: DIABETES MELLITUS
     Route: 048
     Dates: start: 20100101, end: 20100720

REACTIONS (6)
  - BLISTER [None]
  - ERYTHEMA [None]
  - ERYTHEMA MULTIFORME [None]
  - OEDEMA [None]
  - PURPURA [None]
  - RASH [None]
